FAERS Safety Report 6371179-X (Version None)
Quarter: 2009Q3

REPORT INFORMATION
  Report Type: 
  Country: None (occurrence: None)
  Receive Date: 20090923
  Receipt Date: 20070723
  Transmission Date: 20100115
  Serious: Yes (Hospitalization, Other)
  Sender: FDA-Public Use
  Company Number: US-ASTRAZENECA-2007UW02060

PATIENT
  Age: 12637 Day
  Sex: Male
  Weight: 73.9 kg

DRUGS (36)
  1. SEROQUEL [Suspect]
     Indication: BIPOLAR DISORDER
     Route: 048
     Dates: start: 19990701
  2. SEROQUEL [Suspect]
     Indication: POST-TRAUMATIC STRESS DISORDER
     Route: 048
     Dates: start: 19990701
  3. SEROQUEL [Suspect]
     Dosage: 25 MG - 250 MG
     Route: 048
     Dates: start: 20010327
  4. SEROQUEL [Suspect]
     Dosage: 25 MG - 250 MG
     Route: 048
     Dates: start: 20010327
  5. GEODON [Concomitant]
  6. NEURONTIN [Concomitant]
     Indication: ANXIETY
     Dosage: 300 - 800 MG
     Route: 048
  7. CELEXA [Concomitant]
     Route: 065
     Dates: start: 20010327
  8. DOXEPIN HCL [Concomitant]
     Route: 065
     Dates: start: 20010327
  9. DAPSONE [Concomitant]
     Dosage: 25 - 100 MG
     Route: 048
  10. FLONASE [Concomitant]
     Route: 045
  11. NAPROSYN [Concomitant]
     Route: 048
  12. LOMOTIL [Concomitant]
     Dosage: 0.025 - 2.5 MG
     Route: 048
  13. TRAZODONE [Concomitant]
     Indication: INSOMNIA
     Dosage: 50 - 100 MG
     Route: 048
  14. EPIVIR [Concomitant]
     Dosage: 150 - 300 MG
     Route: 048
  15. KALETRA [Concomitant]
     Dosage: 33.3 - 200 MG
     Route: 048
     Dates: start: 20060825
  16. VIREAD [Concomitant]
     Route: 048
  17. INDERAL [Concomitant]
     Dosage: 60 - 120 MG
     Route: 048
  18. PROTONIX [Concomitant]
     Route: 048
  19. TYLENOL (CAPLET) [Concomitant]
     Dosage: 30 - 325 MG
     Route: 048
  20. WELLBUTRIN [Concomitant]
     Dosage: 100 - 150 MG
     Route: 048
     Dates: start: 20020425
  21. LORATADINE [Concomitant]
     Indication: NASAL CONGESTION
     Route: 048
  22. ACYCLOVIR [Concomitant]
     Indication: RASH
     Dosage: 600 - 800 MG
     Route: 048
     Dates: start: 20060613
  23. VALTREX [Concomitant]
     Route: 048
  24. CEFTIN [Concomitant]
     Dosage: 250 500 MG
     Route: 048
  25. ZITHROMAX [Concomitant]
     Indication: BRONCHITIS
     Dosage: 250 - 500 MG
     Route: 048
     Dates: start: 20040416
  26. GLYBURIDE [Concomitant]
     Indication: DIABETES MELLITUS
     Dosage: 2.5 - 5 MG
     Route: 048
     Dates: start: 20051003
  27. KETOCONAZOLE [Concomitant]
     Route: 048
     Dates: start: 20020425
  28. TRUVADA [Concomitant]
     Dosage: 200 - 300 MG
     Route: 048
  29. THIAMINE HCL [Concomitant]
     Route: 048
     Dates: start: 20060416
  30. MYCELEX [Concomitant]
     Route: 048
  31. LISINOPRIL [Concomitant]
     Dosage: 2.5 - 5 MG
     Route: 048
     Dates: start: 20051003
  32. METFORMIN HCL [Concomitant]
     Dosage: 500 - 1000 MG
     Route: 048
     Dates: start: 20051003
  33. EMTRIVA [Concomitant]
     Route: 048
  34. PRILOSEC [Concomitant]
     Route: 048
     Dates: start: 20070129
  35. PROZAC [Concomitant]
     Route: 048
  36. REMERON [Concomitant]
     Route: 048
     Dates: end: 20020425

REACTIONS (9)
  - DIABETIC COMA [None]
  - DIABETIC KETOACIDOSIS [None]
  - DYSPEPSIA [None]
  - GASTROOESOPHAGEAL REFLUX DISEASE [None]
  - HERPES VIRUS INFECTION [None]
  - HYPERGLYCAEMIA [None]
  - ORAL CANDIDIASIS [None]
  - TINEA INFECTION [None]
  - TYPE 2 DIABETES MELLITUS [None]
